FAERS Safety Report 19901797 (Version 1)
Quarter: 2021Q3

REPORT INFORMATION
  Report Type: Spontaneous
  Country: US (occurrence: US)
  Receive Date: 20210930
  Receipt Date: 20210930
  Transmission Date: 20211014
  Serious: No
  Sender: FDA-Public Use
  Company Number: US-PFIZER INC-202101068531

PATIENT
  Age: 43 Year
  Sex: Male
  Weight: 83.91 kg

DRUGS (5)
  1. PHENELZINE SULFATE. [Suspect]
     Active Substance: PHENELZINE SULFATE
     Dosage: 75 MG
     Dates: start: 20210720
  2. KLONOPIN [Concomitant]
     Active Substance: CLONAZEPAM
     Dosage: UNK
  3. PHENELZINE SULFATE. [Suspect]
     Active Substance: PHENELZINE SULFATE
     Indication: DEPRESSION
     Dosage: 15 MG
  4. CLOZAPINE. [Concomitant]
     Active Substance: CLOZAPINE
  5. PHENELZINE SULFATE. [Suspect]
     Active Substance: PHENELZINE SULFATE
     Indication: SOCIAL ANXIETY DISORDER
     Dosage: 82.5 MG, 1X/DAY (FIVE AND A HALF 15MG TABLETS ONCE A DAY BY MOUTH)
     Route: 048

REACTIONS (4)
  - Sleep disorder [Unknown]
  - Blood pressure decreased [Unknown]
  - Feeling abnormal [Unknown]
  - Drug ineffective [Unknown]
